FAERS Safety Report 25816098 (Version 1)
Quarter: 2025Q3

REPORT INFORMATION
  Report Type: Spontaneous
  Country: CA (occurrence: CA)
  Receive Date: 20250918
  Receipt Date: 20250918
  Transmission Date: 20251021
  Serious: Yes (Other)
  Sender: CELLTRION
  Company Number: CA-CELLTRION INC.-2025CA006130

PATIENT

DRUGS (3)
  1. YUFLYMA [Suspect]
     Active Substance: ADALIMUMAB-AATY
     Indication: Psoriatic arthropathy
     Dosage: 40MG SC EVERY 2 WEEKS
     Route: 058
     Dates: start: 20241013
  2. YUFLYMA [Suspect]
     Active Substance: ADALIMUMAB-AATY
     Dosage: MAINTENANCE - 40 MG - SC (SUBCUTANEOUS) EVERY 14 DAYS -PREVIOUS MAINTENANCE - 40 MG - SC (SUBCUTANEO
     Route: 058
     Dates: start: 20241013
  3. YUFLYMA [Suspect]
     Active Substance: ADALIMUMAB-AATY
     Dosage: 40 MG, EVERY 7 DAYS
     Route: 058
     Dates: start: 20241015

REACTIONS (8)
  - Limb injury [Unknown]
  - Presyncope [Unknown]
  - Pain [Unknown]
  - Psoriasis [Unknown]
  - Therapy interrupted [Unknown]
  - Product availability issue [Unknown]
  - Intentional product use issue [Unknown]
  - Drug ineffective [Unknown]
